FAERS Safety Report 7674239-6 (Version None)
Quarter: 2011Q3

REPORT INFORMATION
  Report Type: 
  Country: None (occurrence: None)
  Receive Date: 20110810
  Receipt Date: 20110801
  Transmission Date: 20111222
  Serious: Yes (Hospitalization, Other)
  Sender: FDA-Public Use
  Company Number: US-ELI_LILLY_AND_COMPANY-US201007007860

PATIENT
  Sex: Female

DRUGS (17)
  1. ZANTAC [Concomitant]
     Dosage: 150 MG, BID
  2. FERREX [Concomitant]
     Dosage: 150 MG, QD
  3. TRICOR [Concomitant]
     Dosage: 40 MG, EACH EVENING
  4. METOPROLOL TARTRATE [Concomitant]
     Dosage: 50 MG, QD
  5. NOVOLOG [Concomitant]
     Dosage: 30 U, TID
  6. LASIX [Concomitant]
     Dosage: 40 MG, QD
  7. SIMVASTATIN [Concomitant]
     Dosage: 80 MG, EACH EVENING
  8. LANTUS [Concomitant]
     Dosage: 100 U, EACH EVENING
  9. BYETTA [Suspect]
     Dosage: 5 UG, QD
     Dates: start: 20090701, end: 20091201
  10. PROVENTIL                          /00139501/ [Concomitant]
  11. POTASSIUM CHLORIDE [Concomitant]
     Dosage: 10 MEQ, QD
  12. DIOVAN [Concomitant]
     Dosage: 80 MG, QD
  13. PLAVIX [Concomitant]
     Dosage: 75 MG, QD
  14. PREVACID [Concomitant]
     Dosage: 30 MG, QD
  15. NIFEDIPINE [Concomitant]
     Dosage: 30 MG, QD
  16. ZETIA [Concomitant]
     Dosage: 10 MG, QD
  17. SODIUM BICARBONATE [Concomitant]

REACTIONS (8)
  - RENAL FAILURE [None]
  - PANCREATITIS [None]
  - PAIN [None]
  - CHOLELITHIASIS [None]
  - OFF LABEL USE [None]
  - HYPERTENSION [None]
  - CHOLECYSTITIS CHRONIC [None]
  - SWELLING [None]
